FAERS Safety Report 20988190 (Version 1)
Quarter: 2022Q2

REPORT INFORMATION
  Report Type: Spontaneous
  Country: US (occurrence: None)
  Receive Date: 20220620
  Receipt Date: 20220620
  Transmission Date: 20220721
  Serious: Yes (Hospitalization)
  Sender: FDA-Public Use
  Company Number: None

PATIENT
  Sex: Male

DRUGS (14)
  1. CIMZIA [Suspect]
     Active Substance: CERTOLIZUMAB PEGOL
     Indication: Crohn^s disease
     Dosage: 2 X 200 MG/ML? INJECT 400 MG UNDER THE SKIN (SUBCUTANEOUS INJECTION) EVERY 4 WEEKS?
     Route: 058
     Dates: start: 20200623
  2. CRESTOR TAB [Concomitant]
  3. D-2000 MAXIMUM STRENGTH [Concomitant]
  4. FLINTSTONES CHW COMPLETE [Concomitant]
  5. FLOMAX CAP [Concomitant]
  6. IBUPROFEN TAB [Concomitant]
  7. METOPROL TAR TAB [Concomitant]
  8. MULTIVITAMIN TAB ADLT 50+ [Concomitant]
  9. OMEPRAZOLE [Concomitant]
     Active Substance: OMEPRAZOLE
  10. SERTRALINE HYDROCHLORIDE [Concomitant]
     Active Substance: SERTRALINE HYDROCHLORIDE
  11. TYLENOL TAB [Concomitant]
  12. VITAMIN D3 [Concomitant]
     Active Substance: CHOLECALCIFEROL
  13. VITAMIN D3 SUPER STRENGTH [Concomitant]
  14. XARELTO TAB [Concomitant]

REACTIONS (1)
  - Condition aggravated [None]
